FAERS Safety Report 13422704 (Version 2)
Quarter: 2018Q1

REPORT INFORMATION
  Report Type: Spontaneous
  Country: None (occurrence: FR)
  Receive Date: 20170410
  Receipt Date: 20180110
  Transmission Date: 20180508
  Serious: Yes (Hospitalization)
  Sender: FDA-Public Use
  Company Number: FR-ALLERGAN-1713093US

PATIENT
  Age: 88 Year
  Sex: Female
  Weight: 54 kg

DRUGS (30)
  1. COMBIGAN [Suspect]
     Active Substance: BRIMONIDINE TARTRATE\TIMOLOL MALEATE
     Indication: VITRECTOMY
     Dosage: 2 GTT, QD
     Route: 047
     Dates: start: 20170228, end: 20170309
  2. PERFALGAN [Suspect]
     Active Substance: ACETAMINOPHEN
     Indication: PAIN PROPHYLAXIS
     Dosage: UNK
     Route: 042
     Dates: start: 20170227, end: 20170227
  3. DESFLURANE. [Suspect]
     Active Substance: DESFLURANE
     Indication: ANAESTHESIA
     Dosage: UNK
     Route: 055
     Dates: start: 20170227, end: 20170227
  4. PROPOFOL. [Suspect]
     Active Substance: PROPOFOL
     Indication: ANAESTHESIA
     Dosage: UNK
     Route: 042
     Dates: start: 20170227, end: 20170227
  5. TRACRIUM [Suspect]
     Active Substance: ATRACURIUM BESYLATE
     Indication: ANAESTHESIA
  6. DACRYOSERUM [Suspect]
     Active Substance: BORIC ACID\SODIUM BORATE
     Indication: PROPHYLAXIS
     Dosage: 6 GTT, QD
     Route: 047
     Dates: start: 20170228, end: 20170309
  7. SODIUM HYALURONATE MINI [Suspect]
     Active Substance: HYALURONATE SODIUM
     Indication: PRODUCT USED FOR UNKNOWN INDICATION
     Dosage: UNK
     Dates: start: 20170112
  8. NEOSYNEPHRINE [Suspect]
     Active Substance: PHENYLEPHRINE HYDROCHLORIDE
     Indication: VITRECTOMY
     Dosage: 1 GTT, UNK
     Route: 047
     Dates: start: 20170227, end: 20170227
  9. TRACRIUM [Suspect]
     Active Substance: ATRACURIUM BESYLATE
     Indication: ANAESTHESIA
     Dosage: 20 MG, SINGLE
     Route: 042
     Dates: start: 20170227, end: 20170227
  10. AZYTER [Suspect]
     Active Substance: AZITHROMYCIN ANHYDROUS
     Indication: ANTIBIOTIC PROPHYLAXIS
     Dosage: 1 GTT, QD
     Route: 047
     Dates: start: 20170228, end: 20170228
  11. CORTANCYL [Suspect]
     Active Substance: PREDNISONE
     Indication: VITRECTOMY
     Dosage: UNK
     Route: 047
     Dates: start: 20170228, end: 20170309
  12. OFLOCET [Suspect]
     Active Substance: OFLOXACIN
     Indication: PRODUCT USED FOR UNKNOWN INDICATION
     Dosage: 200 MG, QD
     Route: 048
     Dates: start: 20170227, end: 20170227
  13. ATARAX [Concomitant]
     Active Substance: HYDROXYZINE HYDROCHLORIDE
     Indication: RASH
     Dosage: UNK
     Dates: start: 20170227, end: 20170227
  14. STERDEX [Suspect]
     Active Substance: DEXAMETHASONE\OXYTETRACYCLINE
     Indication: PROPHYLAXIS
     Dosage: UNK
     Route: 047
     Dates: start: 20170227, end: 20170228
  15. RIFAMYCINE CHIBRET [Suspect]
     Active Substance: RIFAMYCIN
     Indication: ANTIBIOTIC PROPHYLAXIS
     Dosage: 3 GTT, UNK
     Route: 047
     Dates: start: 20170228, end: 20170309
  16. VESICARE [Concomitant]
     Active Substance: SOLIFENACIN SUCCINATE
     Indication: PRODUCT USED FOR UNKNOWN INDICATION
  17. TOBRADEX [Suspect]
     Active Substance: DEXAMETHASONE\TOBRAMYCIN
     Indication: PROPHYLAXIS
     Dosage: 3 GTT, UNK
     Route: 047
  18. SUFENTANIL [Suspect]
     Active Substance: SUFENTANIL
     Indication: ANAESTHESIA
     Dosage: UNK
     Route: 042
     Dates: start: 20170227, end: 20170227
  19. EPHEDRINE. [Suspect]
     Active Substance: EPHEDRINE
     Indication: VITRECTOMY
     Dosage: 6 MG, UNK
     Route: 042
     Dates: start: 20170227, end: 20170227
  20. METHYLPREDNISOLONE. [Suspect]
     Active Substance: METHYLPREDNISOLONE
     Indication: VITRECTOMY
     Dosage: UNK
     Route: 042
     Dates: start: 20170227, end: 20170227
  21. OFLOCET [Suspect]
     Active Substance: OFLOXACIN
     Indication: ANTIBIOTIC PROPHYLAXIS
  22. CORTANCYL [Suspect]
     Active Substance: PREDNISONE
     Indication: VITRECTOMY
  23. CATIONORM [Suspect]
     Active Substance: CETALKONIUM\GLYCERIN\MINERAL OIL\POLOXAMER 188\TROMETHAMINE\TYLOXAPOL
     Indication: PRODUCT USED FOR UNKNOWN INDICATION
  24. DEXAFREE [Suspect]
     Active Substance: DEXAMETHASONE SODIUM PHOSPHATE
     Indication: VITRECTOMY
     Dosage: 1 MG/ML, UNK
     Route: 047
     Dates: start: 20170228, end: 20170228
  25. MICARDIS [Concomitant]
     Active Substance: TELMISARTAN
     Indication: PRODUCT USED FOR UNKNOWN INDICATION
  26. NEOSYNEPHRINE [Suspect]
     Active Substance: PHENYLEPHRINE HYDROCHLORIDE
     Indication: ANTIBIOTIC PROPHYLAXIS
  27. SUFENTANIL [Suspect]
     Active Substance: SUFENTANIL
     Indication: ANAESTHESIA
  28. NEFOPAM [Suspect]
     Active Substance: NEFOPAM
     Indication: PAIN PROPHYLAXIS
     Dosage: 20 MG, UNK
     Route: 042
     Dates: start: 20170227, end: 20170227
  29. TOPALGIC (TRAMADOL HYDROCHLORIDE) [Suspect]
     Active Substance: TRAMADOL HYDROCHLORIDE
     Indication: PAIN
     Dosage: 1 DF, UNK
     Route: 048
     Dates: start: 20170228, end: 20170228
  30. MYDRIATICUM [Suspect]
     Active Substance: TROPICAMIDE
     Indication: MYDRIASIS
     Dosage: 1 GTT, QD
     Route: 047
     Dates: start: 20170228, end: 20170228

REACTIONS (1)
  - Drug reaction with eosinophilia and systemic symptoms [Recovering/Resolving]

NARRATIVE: CASE EVENT DATE: 20170306
